FAERS Safety Report 19440220 (Version 4)
Quarter: 2024Q1

REPORT INFORMATION
  Report Type: Report from Study
  Country: AT (occurrence: AT)
  Receive Date: 20210621
  Receipt Date: 20240307
  Transmission Date: 20240410
  Serious: Yes (Hospitalization)
  Sender: FDA-Public Use
  Company Number: AT-CELLTRION INC.-2021AT008201

PATIENT

DRUGS (31)
  1. HERCEPTIN [Suspect]
     Active Substance: TRASTUZUMAB
     Indication: HER2 positive breast cancer
     Dosage: 600 MG, EVERY 3 WEEKS (MOST RECENT DOSE PRIOR TO THE EVENT: 9/MAY/2019)
     Route: 058
     Dates: start: 20180503, end: 20190502
  2. TRASTUZUMAB [Suspect]
     Active Substance: TRASTUZUMAB
     Indication: Breast cancer
     Dosage: 600 MG (Q3W - EVERY 3 WEEKS)
     Route: 042
     Dates: start: 20180503
  3. ADO-TRASTUZUMAB EMTANSINE [Suspect]
     Active Substance: ADO-TRASTUZUMAB EMTANSINE
     Indication: Breast cancer
     Dosage: 3.6 MG/KG (FREQUENCY: Q4W - EVERY 4 WEEKS MOST RECENT DOSE PRIOR TO THE EVENT ON 21AUG2017)
     Route: 042
     Dates: start: 20161114, end: 20170522
  4. DENOSUMAB [Suspect]
     Active Substance: DENOSUMAB
     Indication: Breast cancer
     Dosage: 120 MG (FREQUENCY: MONTHLY MOST RECENT DOSE PRIOR TO THE EVENT ON 19MAR2019)
     Route: 058
     Dates: start: 201611, end: 20181129
  5. PERTUZUMAB [Suspect]
     Active Substance: PERTUZUMAB
     Indication: Breast cancer
     Dosage: 420 MG (FREQUENCY: Q3W - EVERY 3 WEEKS MOST RECENT DOSE PRIOR TO THE EVENT ON 22/NOV/2018)
     Route: 042
     Dates: start: 201811
  6. PERTUZUMAB [Suspect]
     Active Substance: PERTUZUMAB
     Dosage: 840 MG, EVERY 3 WEEKS
     Route: 042
     Dates: start: 20181122, end: 20181122
  7. LETROZOLE [Suspect]
     Active Substance: LETROZOLE
     Indication: Breast cancer
     Dosage: 2.5 MG, DAILY
     Route: 048
     Dates: start: 20180426
  8. LEUPROLIDE ACETATE [Suspect]
     Active Substance: ISOPROPYL ALCOHOL\LEUPROLIDE ACETATE
     Indication: Breast cancer
     Dosage: 11.25 MG EVERY 3 MONTHS
     Route: 058
     Dates: start: 201804
  9. LAFENE [Concomitant]
     Indication: General physical health deterioration
     Dosage: ONGOING = NOT CHECKED
     Dates: start: 20190421, end: 20200224
  10. LAFENE [Concomitant]
     Indication: Spinal pain
     Dosage: ONGOING = NOT CHECKED
     Dates: start: 20200225, end: 20200417
  11. ZOFRAN [Concomitant]
     Active Substance: ONDANSETRON HYDROCHLORIDE
     Indication: Nausea
     Dosage: ONGOING = NOT CHECKED
     Dates: start: 20200228, end: 20200228
  12. ZOFRAN [Concomitant]
     Active Substance: ONDANSETRON HYDROCHLORIDE
     Indication: Vomiting
  13. POLYETHYLENE GLYCOL 3350\POTASSIUM CHLORIDE\SODIUM BICARBONATE\SODIUM [Concomitant]
     Active Substance: POLYETHYLENE GLYCOL 3350\POTASSIUM CHLORIDE\SODIUM BICARBONATE\SODIUM CHLORIDE
     Indication: Nausea
     Dosage: ONGOING = NOT CHECKED
     Dates: start: 20200306, end: 20200311
  14. POLYETHYLENE GLYCOL 3350\POTASSIUM CHLORIDE\SODIUM BICARBONATE\SODIUM [Concomitant]
     Active Substance: POLYETHYLENE GLYCOL 3350\POTASSIUM CHLORIDE\SODIUM BICARBONATE\SODIUM CHLORIDE
     Indication: Vomiting
  15. ACETAMINOPHEN [Concomitant]
     Active Substance: ACETAMINOPHEN
     Indication: Vomiting
     Dosage: ONGOING = NOT CHECKED
     Dates: start: 20200228, end: 20200228
  16. ACETAMINOPHEN [Concomitant]
     Active Substance: ACETAMINOPHEN
     Indication: Nausea
     Dosage: UNK
     Dates: start: 20200228, end: 20200228
  17. ACETAMINOPHEN [Concomitant]
     Active Substance: ACETAMINOPHEN
     Indication: Metastases to central nervous system
     Dosage: ONGOING = NOT CHECKED
     Dates: start: 20170609, end: 20200417
  18. NOVALGIN (AUSTRIA) [Concomitant]
     Dosage: ONGOING = NOT CHECKED
     Dates: start: 20181117, end: 20200417
  19. FRAGMIN [Concomitant]
     Active Substance: DALTEPARIN SODIUM
     Dosage: ONGOING = NOT CHECKED
     Dates: start: 20200228, end: 20200311
  20. MIRANAX [Concomitant]
     Dosage: ONGOING = NOT CHECKED
     Dates: start: 20161115, end: 20200417
  21. ZOLPIDEM [Concomitant]
     Active Substance: ZOLPIDEM TARTRATE
     Indication: Vomiting
     Dosage: ONGOING = NOT CHECKED
     Dates: start: 20200228, end: 20200417
  22. ZOLPIDEM [Concomitant]
     Active Substance: ZOLPIDEM TARTRATE
     Indication: Nausea
  23. ZOFRAN [Concomitant]
     Active Substance: ONDANSETRON HYDROCHLORIDE
     Indication: Product used for unknown indication
     Dosage: ONGOING = NOT CHECKED
     Dates: start: 20161115, end: 20200417
  24. EMEND [Concomitant]
     Active Substance: APREPITANT
     Dosage: ONGOING = NOT CHECKED
     Dates: start: 20161115, end: 20200417
  25. MEFENAMIC ACID [Concomitant]
     Active Substance: MEFENAMIC ACID
     Indication: Product used for unknown indication
     Dosage: ONGOING = NOT CHECKED
     Dates: start: 20170315, end: 20200417
  26. MORPHINE [Concomitant]
     Active Substance: MORPHINE
     Indication: General physical health deterioration
     Dosage: ONGOING = NOT CHECKED
     Dates: start: 20200225, end: 20200417
  27. LYRICA [Concomitant]
     Active Substance: PREGABALIN
     Indication: General physical health deterioration
     Dosage: ONGOING = NOT CHECKED
     Dates: start: 20200225, end: 20200417
  28. DEXAMETHASONE [Concomitant]
     Active Substance: DEXAMETHASONE
     Indication: Vomiting
     Dosage: ONGOING = NOT CHECKED
     Dates: start: 20170330, end: 20200417
  29. DEXAMETHASONE [Concomitant]
     Active Substance: DEXAMETHASONE
     Indication: Nausea
     Dosage: ONGOING = NOT CHECKED
     Dates: start: 20200229, end: 20200302
  30. DEXAMETHASONE [Concomitant]
     Active Substance: DEXAMETHASONE
     Dosage: ONGOING = NOT CHECKED
     Dates: start: 20200303, end: 20200309
  31. DEXAMETHASONE [Concomitant]
     Active Substance: DEXAMETHASONE
     Dosage: UNK
     Dates: start: 20200229, end: 20200302

REACTIONS (2)
  - Post herpetic neuralgia [Not Recovered/Not Resolved]
  - Overdose [Unknown]

NARRATIVE: CASE EVENT DATE: 20200225
